FAERS Safety Report 5833434-9 (Version None)
Quarter: 2008Q3

REPORT INFORMATION
  Report Type: 
  Country: None (occurrence: None)
  Receive Date: 20080801
  Receipt Date: 20080801
  Transmission Date: 20090109
  Serious: No
  Sender: FDA-Public Use
  Company Number: None

PATIENT
  Sex: Female
  Weight: 56.6996 kg

DRUGS (2)
  1. WELLBUTRIN SR [Suspect]
     Dosage: PO QD 200 SR
     Route: 048
     Dates: start: 20071126, end: 20080306
  2. WELLBUTRIN SR [Suspect]
     Dosage: PO QD 200 SR
     Route: 048
     Dates: start: 20080623, end: 20080715

REACTIONS (4)
  - CONDITION AGGRAVATED [None]
  - DEPRESSION [None]
  - THERAPEUTIC RESPONSE UNEXPECTED WITH DRUG SUBSTITUTION [None]
  - TREATMENT FAILURE [None]
